FAERS Safety Report 8159976-1 (Version None)
Quarter: 2012Q1

REPORT INFORMATION
  Report Type: 
  Country: None (occurrence: None)
  Receive Date: 20120223
  Receipt Date: 20120216
  Transmission Date: 20120608
  Serious: Yes (Hospitalization)
  Sender: FDA-Public Use
  Company Number: US-GLAXOSMITHKLINE-A0886473A

PATIENT
  Age: 43 Year
  Sex: Female
  Weight: 122.7 kg

DRUGS (8)
  1. LOPRESSOR [Concomitant]
  2. ZOCOR [Concomitant]
  3. CLONIDINE [Concomitant]
  4. AVANDIA [Suspect]
     Indication: DIABETES MELLITUS
     Dosage: 4MG TWICE PER DAY
     Route: 048
     Dates: start: 20030101, end: 20100331
  5. GLUCOPHAGE [Concomitant]
     Dates: end: 20100331
  6. HYZAAR [Concomitant]
  7. AVANDAMET [Suspect]
     Indication: DIABETES MELLITUS
     Route: 048
     Dates: start: 20030101
  8. TICLID [Concomitant]

REACTIONS (1)
  - CARDIAC DISORDER [None]
